FAERS Safety Report 5428651-6 (Version None)
Quarter: 2007Q3

REPORT INFORMATION
  Report Type: 
  Country: None (occurrence: None)
  Receive Date: 20070827
  Receipt Date: 20070821
  Transmission Date: 20080115
  Serious: Yes (Death)
  Sender: FDA-Public Use
  Company Number: 163-21880-07071512

PATIENT
  Age: 76 Year
  Sex: Male

DRUGS (1)
  1. REVLIMID [Suspect]
     Indication: NON-HODGKIN'S LYMPHOMA REFRACTORY
     Dosage: 10 MG, EVERY HS, ORAL
     Route: 048
     Dates: start: 20070427, end: 20070101

REACTIONS (2)
  - MALIGNANT NEOPLASM PROGRESSION [None]
  - NON-HODGKIN'S LYMPHOMA [None]
